FAERS Safety Report 4281315-7 (Version None)
Quarter: 2004Q1

REPORT INFORMATION
  Report Type: 
  Country: None (occurrence: None)
  Receive Date: 20040129
  Receipt Date: 20030707
  Transmission Date: 20041129
  Serious: Yes (Hospitalization)
  Sender: FDA-Public Use
  Company Number: PL-ROCHE-341786

PATIENT
  Age: 66 Year
  Sex: Female
  Weight: 102 kg

DRUGS (3)
  1. IBANDRONIC ACID [Suspect]
     Indication: OSTEOPOROSIS POSTMENOPAUSAL
     Dosage: ROUTE, DOSE AND FREQUENCY BLINDED.
     Route: 065
     Dates: start: 20030221
  2. SULPIRIDE [Suspect]
     Indication: DRUG USE FOR UNKNOWN INDICATION
     Route: 065
     Dates: start: 20030617, end: 20030716
  3. AMLODIPINE BESYLATE [Concomitant]
     Dosage: DRUG NAME REPORTED AS AMLODYPINE BESYLATE.
     Dates: start: 20020219

REACTIONS (3)
  - ALANINE AMINOTRANSFERASE INCREASED [None]
  - DIVERTICULUM [None]
  - HEPATIC ENZYME INCREASED [None]
